FAERS Safety Report 20558730 (Version 1)
Quarter: 2022Q1

REPORT INFORMATION
  Report Type: Spontaneous
  Country: US (occurrence: US)
  Receive Date: 20220307
  Receipt Date: 20220307
  Transmission Date: 20220423
  Serious: No
  Sender: FDA-Public Use
  Company Number: US-ORGANON-O2202USA001979

PATIENT
  Age: 77 Year
  Sex: Female

DRUGS (7)
  1. CLARINEX [Suspect]
     Active Substance: DESLORATADINE
     Indication: Allergy to chemicals
     Dosage: 5 MILLIGRAM, QD
     Route: 048
     Dates: start: 1999, end: 202112
  2. NASONEX [Suspect]
     Active Substance: MOMETASONE FUROATE
     Indication: Allergy to chemicals
     Dosage: DAILY AS NEEDED
     Route: 045
     Dates: start: 202112
  3. DESLORATADINE [Suspect]
     Active Substance: DESLORATADINE
     Indication: Allergy to chemicals
     Dosage: UNK
     Dates: start: 202112, end: 202112
  4. ALLEGRA [FEXOFENADINE HYDROCHLORIDE] [Concomitant]
     Dosage: UNK
  5. CLARITHROMYCIN [Concomitant]
     Active Substance: CLARITHROMYCIN
     Dosage: UNK
  6. ZYRTEC [Concomitant]
     Active Substance: CETIRIZINE HYDROCHLORIDE
     Dosage: UNK
  7. GENEXA [Concomitant]
     Dosage: UNK

REACTIONS (11)
  - Blood pressure increased [Recovered/Resolved]
  - Nervousness [Recovered/Resolved]
  - Feeling abnormal [Recovered/Resolved]
  - Cerebral disorder [Recovered/Resolved]
  - Asthenia [Recovered/Resolved]
  - Heart rate increased [Recovered/Resolved]
  - Heart rate increased [Recovered/Resolved]
  - Psychomotor hyperactivity [Recovered/Resolved]
  - Product availability issue [Unknown]
  - Product use in unapproved indication [Unknown]
  - Drug effective for unapproved indication [Unknown]

NARRATIVE: CASE EVENT DATE: 20211201
